FAERS Safety Report 20217116 (Version 1)
Quarter: 2021Q4

REPORT INFORMATION
  Report Type: Spontaneous
  Country: US (occurrence: None)
  Receive Date: 20211222
  Receipt Date: 20211222
  Transmission Date: 20220303
  Serious: Yes (Other)
  Sender: FDA-Public Use
  Company Number: 2021A875797

PATIENT
  Age: 70 Year
  Sex: Male

DRUGS (1)
  1. OLAPARIB [Suspect]
     Active Substance: OLAPARIB
     Indication: Hormone-refractory prostate cancer
     Route: 048
     Dates: start: 201802, end: 201912

REACTIONS (4)
  - Acquired gene mutation [Unknown]
  - Drug resistance [Unknown]
  - Metastases to bone [Unknown]
  - Malignant neoplasm progression [Unknown]
